FAERS Safety Report 6348088-5 (Version None)
Quarter: 2009Q3

REPORT INFORMATION
  Report Type: 
  Country: None (occurrence: None)
  Receive Date: 20090908
  Receipt Date: 20090827
  Transmission Date: 20100115
  Serious: Yes (Other)
  Sender: FDA-Public Use
  Company Number: 2009SP022956

PATIENT
  Age: 40 Year
  Sex: Male

DRUGS (9)
  1. MIRTAZAPINE [Suspect]
     Indication: DRUG USE FOR UNKNOWN INDICATION
  2. ABILIFY [Suspect]
     Indication: METABOLIC SYNDROME
     Dosage: 15 MG;QD;PO; PO
     Route: 048
     Dates: start: 20081001
  3. ABILIFY [Suspect]
     Indication: SCHIZOAFFECTIVE DISORDER
     Dosage: 15 MG;QD;PO; PO
     Route: 048
     Dates: start: 20081001
  4. DULOXETINE HYDROCHLORIDE [Suspect]
     Indication: DRUG USE FOR UNKNOWN INDICATION
  5. QUETIAPINE FUMARATE [Suspect]
     Indication: DRUG USE FOR UNKNOWN INDICATION
  6. RISPERIDONE [Suspect]
     Indication: DRUG USE FOR UNKNOWN INDICATION
  7. VALPROATE SODIUM [Suspect]
  8. LITHIUM CARBONATE [Concomitant]
  9. EFFEXOR [Concomitant]

REACTIONS (3)
  - HEPATIC FUNCTION ABNORMAL [None]
  - HYPOTHYROIDISM [None]
  - METABOLIC SYNDROME [None]
